FAERS Safety Report 6864430-0 (Version None)
Quarter: 2010Q3

REPORT INFORMATION
  Report Type: 
  Country: None (occurrence: None)
  Receive Date: 20100721
  Receipt Date: 20080324
  Transmission Date: 20110219
  Serious: No
  Sender: FDA-Public Use
  Company Number: US-PFIZER INC-2008027165

PATIENT
  Sex: Male
  Weight: 97.1 kg

DRUGS (6)
  1. CHANTIX [Suspect]
     Indication: SMOKING CESSATION THERAPY
  2. XOPENEX [Concomitant]
  3. THEO-DUR [Concomitant]
  4. ADVAIR DISKUS 100/50 [Concomitant]
  5. ALBUTEROL [Concomitant]
     Route: 055
  6. OXYGEN [Concomitant]

REACTIONS (4)
  - ANXIETY [None]
  - DRUG WITHDRAWAL SYNDROME [None]
  - INCREASED APPETITE [None]
  - IRRITABILITY [None]
